FAERS Safety Report 5940415-3 (Version None)
Quarter: 2008Q4

REPORT INFORMATION
  Report Type: 
  Country: None (occurrence: None)
  Receive Date: 20081104
  Receipt Date: 20081024
  Transmission Date: 20090506
  Serious: Yes (Other)
  Sender: FDA-Public Use
  Company Number: SE-TYCO HEALTHCARE/MALLINCKRODT-T200801811

PATIENT

DRUGS (1)
  1. SODIUM IODIDE I 131 [Suspect]

REACTIONS (1)
  - BREAST CANCER [None]
